FAERS Safety Report 8077906-8 (Version None)
Quarter: 2012Q1

REPORT INFORMATION
  Report Type: 
  Country: None (occurrence: None)
  Receive Date: 20120127
  Receipt Date: 20110104
  Transmission Date: 20120608
  Serious: No
  Sender: FDA-Public Use
  Company Number: US-ABBOTT-11P-163-0695202-00

PATIENT
  Age: 54 Year
  Sex: Female

DRUGS (6)
  1. FOLIC ACID [Concomitant]
     Indication: DRUG THERAPY
  2. NEXIUM [Concomitant]
     Indication: GASTROOESOPHAGEAL REFLUX DISEASE
  3. HUMIRA [Suspect]
     Indication: PSORIATIC ARTHROPATHY
     Dates: start: 20101003
  4. RAMATRIL [Concomitant]
     Indication: BLOOD PRESSURE
  5. ALBUTEROL [Concomitant]
     Indication: HYPERSENSITIVITY
  6. XANAX [Concomitant]
     Indication: DEPRESSION

REACTIONS (6)
  - INJECTION SITE ERYTHEMA [None]
  - DYSPNOEA [None]
  - INJECTION SITE PAIN [None]
  - INJECTION SITE NODULE [None]
  - INJECTION SITE OEDEMA [None]
  - INJECTION SITE WARMTH [None]
